FAERS Safety Report 9301421 (Version 1)
Quarter: 2013Q2

REPORT INFORMATION
  Report Type: Spontaneous
  Country: US (occurrence: US)
  Receive Date: 20130521
  Receipt Date: 20130521
  Transmission Date: 20140414
  Serious: Yes (Disabling)
  Sender: FDA-Public Use
  Company Number: US-BRISTOL-MYERS SQUIBB COMPANY-18884866

PATIENT
  Age: 40 Year
  Sex: Female
  Weight: 77.1 kg

DRUGS (7)
  1. ABILIFY [Suspect]
     Indication: DEPRESSION
     Dates: start: 20130403
  2. TOPAMAX [Concomitant]
  3. CYMBALTA [Concomitant]
  4. VIIBRYD [Concomitant]
  5. ZYRTEC [Concomitant]
  6. SINGULAIR [Concomitant]
  7. PANTOPRAZOLE [Concomitant]

REACTIONS (2)
  - Vertigo [Unknown]
  - Sleep disorder [Unknown]
